FAERS Safety Report 6748232-1 (Version None)
Quarter: 2010Q2

REPORT INFORMATION
  Report Type: 
  Country: None (occurrence: None)
  Receive Date: 20100601
  Receipt Date: 20100526
  Transmission Date: 20101027
  Serious: No
  Sender: FDA-Public Use
  Company Number: US-BIOGENIDEC-2010BI017400

PATIENT
  Age: 46 Year
  Sex: Female

DRUGS (2)
  1. AVONEX [Suspect]
     Indication: MULTIPLE SCLEROSIS
     Route: 030
     Dates: start: 20050101
  2. AVONEX [Suspect]
     Route: 030
     Dates: start: 20020902, end: 20050101

REACTIONS (8)
  - BACK PAIN [None]
  - CHILLS [None]
  - DYSPNOEA [None]
  - INFLUENZA LIKE ILLNESS [None]
  - MALAISE [None]
  - MIGRAINE [None]
  - NAUSEA [None]
  - VOMITING [None]
